FAERS Safety Report 5147150-2 (Version None)
Quarter: 2006Q4

REPORT INFORMATION
  Report Type: 
  Country: None (occurrence: None)
  Receive Date: 20061108
  Receipt Date: 20061108
  Transmission Date: 20070319
  Serious: Yes (Life-Threatening, Hospitalization, Other)
  Sender: FDA-Public Use
  Company Number: None

PATIENT
  Age: 28 Year
  Sex: Female
  Weight: 105.2345 kg

DRUGS (1)
  1. BIAXIN [Suspect]
     Indication: TOOTH ABSCESS
     Dosage: 1 PILL     2 X A DAY    PO
     Route: 048
     Dates: start: 20060924, end: 20060927

REACTIONS (1)
  - ANAPHYLACTIC REACTION [None]
